FAERS Safety Report 23478940 (Version 1)
Quarter: 2024Q1

REPORT INFORMATION
  Report Type: Report from Study
  Country: US (occurrence: US)
  Receive Date: 20240205
  Receipt Date: 20240205
  Transmission Date: 20240410
  Serious: No
  Sender: FDA-Public Use
  Company Number: US-EXELIXIS-CABO-23068932

PATIENT
  Sex: Male

DRUGS (1)
  1. CABOMETYX [Suspect]
     Active Substance: CABOZANTINIB S-MALATE
     Indication: Renal cancer
     Dosage: ALTERNATE 20MG AND 40MG DAILY
     Route: 048
     Dates: start: 202112

REACTIONS (2)
  - Skin exfoliation [Unknown]
  - Inappropriate schedule of product administration [Unknown]
